FAERS Safety Report 19590495 (Version 1)
Quarter: 2021Q3

REPORT INFORMATION
  Report Type: Spontaneous
  Country: US (occurrence: US)
  Receive Date: 20210721
  Receipt Date: 20210721
  Transmission Date: 20211014
  Serious: No
  Sender: FDA-Public Use
  Company Number: US-SA-2021SA235804

PATIENT
  Sex: Female

DRUGS (17)
  1. LORAZEPAM. [Concomitant]
     Active Substance: LORAZEPAM
  2. MONTELUKAST [Concomitant]
     Active Substance: MONTELUKAST SODIUM
  3. AMLODIPINE [Concomitant]
     Active Substance: AMLODIPINE BESYLATE
     Indication: HYPERTENSION
  4. VIIBRYD [Concomitant]
     Active Substance: VILAZODONE HYDROCHLORIDE
  5. SYNTHROID [Concomitant]
     Active Substance: LEVOTHYROXINE SODIUM
  6. DUPIXENT [Suspect]
     Active Substance: DUPILUMAB
     Indication: DERMATITIS ATOPIC
     Dosage: 600 MG, 1X
     Route: 058
  7. FLECTOR [DICLOFENAC SODIUM] [Concomitant]
     Active Substance: DICLOFENAC SODIUM
  8. RISPERIDONE. [Concomitant]
     Active Substance: RISPERIDONE
  9. GABAPENTIN. [Concomitant]
     Active Substance: GABAPENTIN
  10. HYDROXYZINE [Concomitant]
     Active Substance: HYDROXYZINE HYDROCHLORIDE
  11. SILDENAFIL. [Concomitant]
     Active Substance: SILDENAFIL
  12. CARTIA XT [Concomitant]
     Active Substance: DILTIAZEM HYDROCHLORIDE
  13. METOPROLOL. [Concomitant]
     Active Substance: METOPROLOL
  14. VALACYCLOVIR [Concomitant]
     Active Substance: VALACYCLOVIR HYDROCHLORIDE
  15. CLOBETASOL [Concomitant]
     Active Substance: CLOBETASOL
  16. SUMATRIPTAN. [Concomitant]
     Active Substance: SUMATRIPTAN
  17. ZOLPIDEM [Concomitant]
     Active Substance: ZOLPIDEM TARTRATE

REACTIONS (1)
  - Skin haemorrhage [Unknown]
